FAERS Safety Report 5515106-3 (Version None)
Quarter: 2007Q4

REPORT INFORMATION
  Report Type: 
  Country: None (occurrence: None)
  Receive Date: 20071113
  Receipt Date: 20070105
  Transmission Date: 20080405
  Serious: No
  Sender: FDA-Public Use
  Company Number: A0634520A

PATIENT
  Age: 74 Year
  Sex: Male

DRUGS (2)
  1. COREG [Suspect]
     Indication: DRUG USE FOR UNKNOWN INDICATION
     Dosage: 3.125MG TWICE PER DAY
     Route: 048
  2. ASPIRIN [Concomitant]

REACTIONS (3)
  - OEDEMA PERIPHERAL [None]
  - PHARMACEUTICAL PRODUCT COMPLAINT [None]
  - SKIN DISCOLOURATION [None]
